FAERS Safety Report 11859882 (Version 3)
Quarter: 2018Q2

REPORT INFORMATION
  Report Type: Spontaneous
  Country: US (occurrence: US)
  Receive Date: 20151222
  Receipt Date: 20180413
  Transmission Date: 20180711
  Serious: Yes (Disabling, Other)
  Sender: FDA-Public Use
  Company Number: US-ENDO PHARMACEUTICALS INC.-2015-005073

PATIENT
  Age: 52 Year
  Sex: Male
  Weight: 113.5 kg

DRUGS (8)
  1. LIPITOR [Concomitant]
     Active Substance: ATORVASTATIN CALCIUM
     Indication: BLOOD CHOLESTEROL
     Dosage: UNK UNKNOWN, UNKNOWN
     Route: 065
     Dates: start: 2010
  2. FORTESTA [Suspect]
     Active Substance: TESTOSTERONE
     Indication: ANDROGEN REPLACEMENT THERAPY
     Dosage: UNK UNKNOWN, UNKNOWN
     Route: 061
  3. ANDROGEL [Suspect]
     Active Substance: TESTOSTERONE
     Dosage: 1 TO 4 PUMPS PER DAY (VARIED)
     Route: 065
     Dates: start: 201201, end: 201406
  4. ANDROGEL [Suspect]
     Active Substance: TESTOSTERONE
     Dosage: UNK UNKNOWN, UNKNOWN
     Route: 065
     Dates: start: 200606, end: 2014
  5. TESTIM [Suspect]
     Active Substance: TESTOSTERONE
     Indication: ANDROGEN REPLACEMENT THERAPY
     Dosage: UNK UNKNOWN, UNKNOWN
     Route: 062
  6. LISINOPRIL HCTZ [Concomitant]
     Active Substance: HYDROCHLOROTHIAZIDE\LISINOPRIL
     Indication: BLOOD PRESSURE MEASUREMENT
     Dosage: UNK UNKNOWN, UNKNOWN
     Route: 065
     Dates: start: 2010
  7. ANDROGEL [Suspect]
     Active Substance: TESTOSTERONE
     Indication: ANDROGEN REPLACEMENT THERAPY
     Dosage: 4 PUMPS PER DAY
     Route: 065
     Dates: start: 201101, end: 201112
  8. ANDROGEL [Suspect]
     Active Substance: TESTOSTERONE
     Dosage: ^1 PACKET PER DAY^
     Route: 065
     Dates: start: 2006, end: 201003

REACTIONS (9)
  - Blindness unilateral [Not Recovered/Not Resolved]
  - Pain [Unknown]
  - Emotional distress [Unknown]
  - Quality of life decreased [Unknown]
  - Arthropathy [Unknown]
  - Eye disorder [Not Recovered/Not Resolved]
  - General physical health deterioration [Unknown]
  - Retinopathy proliferative [Unknown]
  - Cerebrovascular accident [Unknown]

NARRATIVE: CASE EVENT DATE: 2012
